FAERS Safety Report 23961476 (Version 1)
Quarter: 2024Q2

REPORT INFORMATION
  Report Type: Spontaneous
  Country: GH (occurrence: GH)
  Receive Date: 20240611
  Receipt Date: 20240611
  Transmission Date: 20240715
  Serious: Yes (Hospitalization)
  Sender: FDA-Public Use
  Company Number: GH-MYLANLABS-2024M1052644

PATIENT
  Sex: Male

DRUGS (3)
  1. TENOFOVIR DISOPROXIL [Suspect]
     Active Substance: TENOFOVIR DISOPROXIL
     Indication: Perinatal HIV infection
     Dosage: UNK, RECEIVING FROM THE AGE OF APPROXIMATELY 10?YEARS
     Route: 065
  2. LAMIVUDINE [Suspect]
     Active Substance: LAMIVUDINE
     Indication: Perinatal HIV infection
     Dosage: UNK, RECEIVING FROM THE AGE OF APPROXIMATELY 10?YEARSRE
     Route: 065
  3. LOPINAVIR\RITONAVIR [Suspect]
     Active Substance: LOPINAVIR\RITONAVIR
     Indication: Perinatal HIV infection
     Dosage: UNK, RECEIVING FROM THE AGE OF APPROXIMATELY 10?YEARS
     Route: 065

REACTIONS (2)
  - Meningitis cryptococcal [Recovering/Resolving]
  - Treatment noncompliance [Recovering/Resolving]
